FAERS Safety Report 6240484-X (Version None)
Quarter: 2009Q2

REPORT INFORMATION
  Report Type: 
  Country: None (occurrence: None)
  Receive Date: 20090623
  Receipt Date: 20090320
  Transmission Date: 20091009
  Serious: No
  Sender: FDA-Public Use
  Company Number: US-ASTRAZENECA-2009UW07208

PATIENT
  Age: 28383 Day
  Sex: Male
  Weight: 95.3 kg

DRUGS (3)
  1. PULMICORT RESPULES [Suspect]
     Dosage: 0.25 MCGS
     Route: 055
  2. LIPITOR [Concomitant]
  3. SYNTHROID [Concomitant]

REACTIONS (1)
  - BLOOD GLUCOSE INCREASED [None]
